FAERS Safety Report 14369943 (Version 1)
Quarter: 2018Q1

REPORT INFORMATION
  Report Type: Spontaneous
  Country: US (occurrence: US)
  Receive Date: 20180110
  Receipt Date: 20180110
  Transmission Date: 20180509
  Serious: No
  Sender: FDA-Public Use
  Company Number: US-ENDO PHARMACEUTICALS INC-2016-007263

PATIENT
  Sex: Female
  Weight: 63.49 kg

DRUGS (6)
  1. LORATADINE. [Concomitant]
     Active Substance: LORATADINE
     Indication: HYPERSENSITIVITY
  2. DEXILANT [Concomitant]
     Active Substance: DEXLANSOPRAZOLE
     Indication: DYSPEPSIA
     Dosage: UNK UNK, UNKNOWN
     Route: 065
     Dates: start: 2012
  3. CALCIUM W/MAGNESIUM/VITAMIN D [Concomitant]
     Indication: PRODUCT USED FOR UNKNOWN INDICATION
     Dosage: UNK UNKNOWN, UNKNOWN
     Route: 065
     Dates: start: 2012
  4. CLARITIN-D NOS [Concomitant]
     Active Substance: LORATADINE\PSEUDOEPHEDRINE SULFATE
     Indication: NASAL CONGESTION
  5. ACYCLOVIR TABLETS 400 MG [Suspect]
     Active Substance: ACYCLOVIR
     Indication: IMMUNE SYSTEM DISORDER
     Dosage: 400 MG, BID
     Route: 065
     Dates: start: 2012
  6. LIDOCAIN                           /00033401/ [Concomitant]
     Active Substance: LIDOCAINE
     Indication: PAIN
     Dosage: 3 PATCH, PER NIGHT, AS NEEDED
     Route: 065

REACTIONS (2)
  - Weight fluctuation [Unknown]
  - Off label use [Unknown]
